FAERS Safety Report 9203313 (Version 2)
Quarter: 2013Q4

REPORT INFORMATION
  Report Type: Spontaneous
  Country: GB (occurrence: GB)
  Receive Date: 20130402
  Receipt Date: 20131021
  Transmission Date: 20140711
  Serious: Yes (Life-Threatening, Hospitalization)
  Sender: FDA-Public Use
  Company Number: GB-JNJFOC-20130317676

PATIENT
  Age: 57 Year
  Sex: Female

DRUGS (10)
  1. ITRACONAZOLE [Suspect]
     Indication: ASPERGILLUS INFECTION
     Route: 048
     Dates: start: 20130125, end: 20130311
  2. FLUOXETINE [Suspect]
     Indication: DEPRESSION
     Route: 048
     Dates: end: 20130314
  3. RUPATADINE FUMARATE [Suspect]
     Indication: ASTHMA
     Route: 048
     Dates: end: 20130314
  4. SALBUTAMOL SULPHATE [Concomitant]
     Indication: ASTHMA
     Route: 055
  5. CARBOCISTEINE [Concomitant]
     Route: 048
  6. MONTELUKAST [Concomitant]
     Indication: ASTHMA
     Route: 048
  7. OMEPRAZOLE [Concomitant]
     Route: 048
  8. SODIUM CHLORIDE [Concomitant]
     Indication: SPUTUM RETENTION
     Route: 065
  9. SYMBICORT [Concomitant]
     Indication: ASTHMA
     Route: 055
  10. UNIPHYLLIN CONTINUS [Concomitant]
     Indication: ASTHMA
     Route: 048

REACTIONS (8)
  - Long QT syndrome [Unknown]
  - Cardiac arrest [Recovered/Resolved]
  - Electrocardiogram QT prolonged [Not Recovered/Not Resolved]
  - Convulsion [Unknown]
  - Syncope [Recovering/Resolving]
  - Unresponsive to stimuli [Unknown]
  - Urinary tract infection [Unknown]
  - Ventricular fibrillation [Unknown]
